FAERS Safety Report 19553855 (Version 1)
Quarter: 2021Q3

REPORT INFORMATION
  Report Type: Spontaneous
  Country: CA (occurrence: CA)
  Receive Date: 20210714
  Receipt Date: 20210714
  Transmission Date: 20211014
  Serious: Yes (Hospitalization, Disabling)
  Sender: FDA-Public Use
  Company Number: CA-SA-2021SA226875

PATIENT
  Sex: Female
  Weight: 81 kg

DRUGS (4)
  1. RANITIDINE. [Suspect]
     Active Substance: RANITIDINE
     Dosage: UNK
     Route: 048
  2. LOSEC [Suspect]
     Active Substance: OMEPRAZOLE
     Dosage: 20 MG, BID
     Route: 048
  3. FAMOTIDINE. [Suspect]
     Active Substance: FAMOTIDINE
     Dosage: 40 MG, BID
  4. RABEPRAZOLE SODIUM. [Suspect]
     Active Substance: RABEPRAZOLE SODIUM
     Dosage: 20 MG, BID
     Route: 048

REACTIONS (2)
  - Gastrooesophageal reflux disease [Recovered/Resolved]
  - Gastritis [Recovered/Resolved]
